FAERS Safety Report 15246572 (Version 1)
Quarter: 2018Q3

REPORT INFORMATION
  Report Type: Spontaneous
  Country: US (occurrence: US)
  Receive Date: 20180806
  Receipt Date: 20180806
  Transmission Date: 20181010
  Serious: No
  Sender: FDA-Public Use
  Company Number: US-ACTELION-A-US2018-176782

PATIENT
  Age: 80 Year
  Sex: Male

DRUGS (5)
  1. VALCHLOR [Suspect]
     Active Substance: MECHLORETHAMINE
     Indication: MYCOSIS FUNGOIDES
     Dosage: APPLYING EVERY OTHER DAY
     Route: 061
     Dates: start: 20180717
  2. TRIAMCINOLONE ACETONIDE. [Concomitant]
     Active Substance: TRIAMCINOLONE ACETONIDE
  3. HYDROXYZINE [Concomitant]
     Active Substance: HYDROXYZINE HYDROCHLORIDE
  4. CLARITIN?D NOS [Concomitant]
     Active Substance: LORATADINE\PSEUDOEPHEDRINE SULFATE
  5. CLOBETASOL [Concomitant]
     Active Substance: CLOBETASOL

REACTIONS (2)
  - Inappropriate schedule of drug administration [Unknown]
  - Pruritus [Unknown]
